FAERS Safety Report 9134542 (Version 1)
Quarter: 2013Q1

REPORT INFORMATION
  Report Type: Spontaneous
  Country: US (occurrence: US)
  Receive Date: 20130304
  Receipt Date: 20130304
  Transmission Date: 20140127
  Serious: Yes (Hospitalization)
  Sender: FDA-Public Use
  Company Number: US-ELI_LILLY_AND_COMPANY-US201302008013

PATIENT
  Age: 96 Year
  Sex: Male

DRUGS (16)
  1. FORTEO [Suspect]
     Indication: OSTEOPOROSIS
     Dosage: 20 UG, QD
  2. FORTEO [Suspect]
     Dosage: 20 UG, QD
     Dates: start: 201301
  3. LEVOTHYROXINE [Concomitant]
     Dosage: 0.05 MG, UNK
  4. ATORVASTATIN [Concomitant]
     Dosage: 10 MG, UNK
  5. NIASPAN [Concomitant]
     Dosage: 750 MG, BID
  6. CLARITIN [Concomitant]
  7. CENTRUM SILVER [Concomitant]
  8. FISH OIL [Concomitant]
     Dosage: 1200 MG, UNK
  9. CALTRATE [Concomitant]
     Dosage: UNK, BID
  10. VITAMIN C [Concomitant]
     Dosage: 500 MG, UNK
  11. GLUCOSAMINE CHONDROITIN [Concomitant]
  12. PRESERVISION EYE VITAMIN AND MINERAL SUPPL. [Concomitant]
  13. MUCINEX [Concomitant]
     Dosage: 1200 MG, QD
  14. COLACE [Concomitant]
     Dosage: UNK, QD
  15. VITAMIN B-12 [Concomitant]
     Dosage: UNK, MONTHLY (1/M)
  16. PROCRIT [Concomitant]

REACTIONS (5)
  - Femur fracture [Recovered/Resolved]
  - Fall [Recovered/Resolved]
  - Muscular weakness [Unknown]
  - Bone density decreased [Unknown]
  - Incorrect drug administration duration [Unknown]
